FAERS Safety Report 7760045-0 (Version None)
Quarter: 2011Q3

REPORT INFORMATION
  Report Type: 
  Country: None (occurrence: None)
  Receive Date: 20110919
  Receipt Date: 20110901
  Transmission Date: 20111222
  Serious: Yes (Hospitalization, Disabling)
  Sender: FDA-Public Use
  Company Number: US-BAYER-2011-009258

PATIENT
  Age: 52 Year
  Sex: Female
  Weight: 90.703 kg

DRUGS (22)
  1. ZOLOFT [Concomitant]
     Indication: OBSESSIVE-COMPULSIVE DISORDER
  2. KLONOPIN [Concomitant]
     Indication: OBSESSIVE-COMPULSIVE DISORDER
     Dosage: 0.5 MG
     Dates: start: 20070101, end: 20090101
  3. NAPROXEN (ALEVE) [Concomitant]
     Dosage: 220 - 440 MG
  4. CLONAZEPAM [Concomitant]
  5. YASMIN [Suspect]
     Indication: CONTRACEPTION
     Dosage: UNK
     Dates: start: 20060101
  6. ZOLOFT [Concomitant]
     Indication: ANXIETY
     Dosage: UNK
     Dates: start: 20030101
  7. KLONOPIN [Concomitant]
     Indication: ANXIETY
  8. PRAVACHOL [Concomitant]
     Indication: BLOOD CHOLESTEROL INCREASED
     Dosage: 40 MG, UNK
     Dates: start: 20070101, end: 20100101
  9. ALLEGRA [Concomitant]
     Indication: MULTIPLE ALLERGIES
     Dosage: 60 MG, UNK
     Dates: start: 20000101, end: 20100101
  10. SKELAXIN [Concomitant]
     Dosage: TID/PRN
  11. FLONASE [Concomitant]
     Indication: MULTIPLE ALLERGIES
     Dosage: UNK
     Dates: start: 20000101
  12. ASCORBIC ACID [Concomitant]
     Dosage: DAILY
  13. VALTREX [Concomitant]
     Dosage: 500 MG, QD
  14. SYNTHROID [Concomitant]
     Indication: HYPOTHYROIDISM
     Dosage: 75 MCG
     Dates: start: 20050101, end: 20100101
  15. LORTAB [Concomitant]
     Indication: PAIN
     Dosage: 5/325
  16. ESTER C [Concomitant]
  17. NEXIUM [Concomitant]
  18. YASMIN [Suspect]
     Dosage: UNK
     Dates: start: 20070101
  19. YAZ [Suspect]
     Indication: CONTRACEPTION
     Dosage: UNK
     Dates: start: 20080902, end: 20090115
  20. TRAZODONE HCL [Concomitant]
     Indication: SLEEP DISORDER THERAPY
     Dosage: 50 MG, UNK
     Dates: start: 20030101
  21. DIETARY SUPPLEMENTS [Concomitant]
  22. MULTI-VITAMIN [Concomitant]
     Dosage: UNK UNK, QD

REACTIONS (11)
  - DEPRESSION [None]
  - ARTHRALGIA [None]
  - ERYTHEMA [None]
  - FEELING HOT [None]
  - PAIN IN EXTREMITY [None]
  - OEDEMA PERIPHERAL [None]
  - VENOUS INSUFFICIENCY [None]
  - MENTAL DISORDER [None]
  - JOINT SWELLING [None]
  - DEEP VEIN THROMBOSIS [None]
  - ANXIETY [None]
